FAERS Safety Report 18118090 (Version 2)
Quarter: 2020Q3

REPORT INFORMATION
  Report Type: Report from Study
  Country: GB (occurrence: GB)
  Receive Date: 20200806
  Receipt Date: 20200810
  Transmission Date: 20201103
  Serious: Yes (Death, Hospitalization)
  Sender: FDA-Public Use
  Company Number: GB-PFIZER INC-2020293673

PATIENT
  Age: 8 Decade
  Sex: Male

DRUGS (7)
  1. RITUXIMAB. [Suspect]
     Active Substance: RITUXIMAB
     Indication: MANTLE CELL LYMPHOMA
     Dosage: UNK (9 DAYS FROM TO SARS?COV?2 DIAGNOSIS)
  2. DOXORUBICIN HCL [Suspect]
     Active Substance: DOXORUBICIN HYDROCHLORIDE
     Indication: MANTLE CELL LYMPHOMA
     Dosage: UNK (9 DAYS FROM TO SARS?COV?2 DIAGNOSIS)
  3. IBRUTINIB [Suspect]
     Active Substance: IBRUTINIB
     Indication: MANTLE CELL LYMPHOMA
     Dosage: UNK (TREATMENT WITHIN 3 MONTHS OF DIAGNOSIS WITH SARS?COV?2 INFECTION)
  4. VENETOCLAX. [Concomitant]
     Active Substance: VENETOCLAX
     Indication: MANTLE CELL LYMPHOMA
     Dosage: UNK (TREATMENT WITHIN 3 MONTHS OF DIAGNOSIS WITH SARS?COV?2 INFECTION)
  5. CYCLOPHOSPHAMIDE. [Suspect]
     Active Substance: CYCLOPHOSPHAMIDE
     Indication: MANTLE CELL LYMPHOMA
     Dosage: UNK (9 DAYS FROM TO SARS?COV?2 DIAGNOSIS)
  6. VINCRISTINE SULFATE. [Suspect]
     Active Substance: VINCRISTINE SULFATE
     Indication: MANTLE CELL LYMPHOMA
     Dosage: UNK (9 DAYS FROM TO SARS?COV?2 DIAGNOSIS)
  7. PREDNISONE. [Suspect]
     Active Substance: PREDNISONE
     Indication: MANTLE CELL LYMPHOMA
     Dosage: UNK (9 DAYS FROM TO SARS?COV?2 DIAGNOSIS)

REACTIONS (1)
  - COVID-19 [Fatal]
